FAERS Safety Report 8784811 (Version 1)
Quarter: 2012Q4

REPORT INFORMATION
  Report Type: Spontaneous
  Country: FR (occurrence: None)
  Receive Date: 20120831
  Receipt Date: 20120831
  Transmission Date: 20130627
  Serious: Yes (Death)
  Sender: FDA-Public Use
  Company Number: DSA_59124_2012

PATIENT

DRUGS (5)
  1. FLUOROURACIL (FLUOROURACIL) [Suspect]
     Indication: ADENOCARCINOMA
  2. CALCIUM FOLINATE [Suspect]
     Route: 042
  3. IRINOTECAN [Suspect]
     Route: 042
  4. GRANISETRON [Concomitant]
  5. METHYLPREDNISOLONE [Concomitant]

REACTIONS (3)
  - Metastases to peritoneum [None]
  - Adenocarcinoma [None]
  - Malignant neoplasm progression [None]
